FAERS Safety Report 4531460-3 (Version None)
Quarter: 2004Q4

REPORT INFORMATION
  Report Type: 
  Country: None (occurrence: None)
  Receive Date: 20041216
  Receipt Date: 20041123
  Transmission Date: 20050328
  Serious: Yes (Hospitalization, Disabling, Other)
  Sender: FDA-Public Use
  Company Number: USA031049961

PATIENT
  Age: 41 Year
  Sex: Male
  Weight: 74 kg

DRUGS (15)
  1. HUMULIN L [Suspect]
     Indication: DIABETES MELLITUS
     Dosage: 10 U/2 DAY
     Dates: start: 19920101
  2. HUMALOG [Suspect]
     Indication: DIABETES MELLITUS
     Dates: start: 19970101
  3. HUMULIN R [Suspect]
     Indication: DIABETES MELLITUS
     Dates: start: 19920101, end: 19970101
  4. HUMULIN U [Suspect]
     Indication: DIABETES MELLITUS
     Dates: start: 19940610
  5. ILETIN-BEEF/PORK REGULAR INSULIN (INSULIN, ANIMAL) [Suspect]
     Indication: DIABETES MELLITUS
     Dates: start: 19960101
  6. HUMULIN N [Suspect]
     Indication: DIABETES MELLITUS
     Dosage: 14 U DAY
     Dates: start: 20040503
  7. NPH ILETIN I (BEEF-PORK) [Suspect]
     Indication: DIABETES MELLITUS
     Dates: start: 19960101
  8. ULTRA-LENTE ILETIN INSULIN [Suspect]
     Indication: DIABETES MELLITUS
     Dates: start: 19681209
  9. ILETIN-BEEF/PORK SEMILENTE INSULIN (INSULIN, ANIMAL [Suspect]
     Indication: DIABETES MELLITUS
     Dates: start: 19681209
  10. LENTE ILETIN (BEEF-PORK) INSULIN ZINC [Suspect]
     Indication: DIABETES MELLITUS
  11. INSULIN [Suspect]
     Indication: DIABETES MELLITUS
  12. ASPIRIN [Concomitant]
  13. CENTRUM [Concomitant]
  14. PREVACID [Concomitant]
  15. VITAMIN E [Concomitant]

REACTIONS (69)
  - ABDOMINAL PAIN [None]
  - ABNORMAL BEHAVIOUR [None]
  - ACIDOSIS [None]
  - ACNE [None]
  - AGGRESSION [None]
  - AMNESIA [None]
  - ANIMAL BITE [None]
  - ASTHENIA [None]
  - BACK PAIN [None]
  - BODY HEIGHT BELOW NORMAL [None]
  - BRONCHITIS [None]
  - BUNDLE BRANCH BLOCK RIGHT [None]
  - CARPAL TUNNEL SYNDROME [None]
  - CONVULSION [None]
  - COUGH [None]
  - CROUP INFECTIOUS [None]
  - DEPRESSION [None]
  - DIABETES MELLITUS INADEQUATE CONTROL [None]
  - DIABETES MELLITUS INSULIN-DEPENDENT [None]
  - DIABETIC RETINOPATHY [None]
  - DIARRHOEA [None]
  - DISORIENTATION [None]
  - DIZZINESS [None]
  - ENURESIS [None]
  - EPIDIDYMAL CYST [None]
  - EYE SWELLING [None]
  - FAMILY STRESS [None]
  - FATIGUE [None]
  - FEELING COLD [None]
  - GROIN PAIN [None]
  - HALLUCINATION [None]
  - HEADACHE [None]
  - HYDROCELE [None]
  - HYPERHIDROSIS [None]
  - HYPERKERATOSIS [None]
  - HYPOCHLORAEMIA [None]
  - HYPOGLYCAEMIA [None]
  - HYPONATRAEMIA [None]
  - INCREASED UPPER AIRWAY SECRETION [None]
  - KETONURIA [None]
  - LIMB INJURY [None]
  - LIPODYSTROPHY ACQUIRED [None]
  - LOOSE STOOLS [None]
  - LOSS OF CONSCIOUSNESS [None]
  - LYMPHADENOPATHY [None]
  - MACULAR OEDEMA [None]
  - MARKEDLY REDUCED DIETARY INTAKE [None]
  - MULTIPLE FRACTURES [None]
  - NEUROPATHY PERIPHERAL [None]
  - PAIN [None]
  - PAIN IN EXTREMITY [None]
  - PARAESTHESIA [None]
  - PSYCHOMOTOR HYPERACTIVITY [None]
  - RASH PUSTULAR [None]
  - RENAL FAILURE [None]
  - RETINAL VASCULAR DISORDER [None]
  - ROAD TRAFFIC ACCIDENT [None]
  - SEASONAL ALLERGY [None]
  - SINUS HEADACHE [None]
  - SOMOGYI PHENOMENON [None]
  - STARING [None]
  - STRESS SYMPTOMS [None]
  - STUPOR [None]
  - SWELLING [None]
  - TESTICULAR PAIN [None]
  - TREMOR [None]
  - ULCER [None]
  - VIRAL UPPER RESPIRATORY TRACT INFECTION [None]
  - WEIGHT INCREASED [None]
